FAERS Safety Report 18403383 (Version 1)
Quarter: 2020Q4

REPORT INFORMATION
  Report Type: Spontaneous
  Country: GU (occurrence: GU)
  Receive Date: 20201019
  Receipt Date: 20201019
  Transmission Date: 20210114
  Serious: No
  Sender: FDA-Public Use
  Company Number: None

PATIENT
  Age: 37 Year
  Sex: Male
  Weight: 173.6 kg

DRUGS (3)
  1. REMDESIVIR. [Suspect]
     Active Substance: REMDESIVIR
     Indication: COVID-19
     Route: 042
     Dates: start: 20201006, end: 20201010
  2. CEFTRIAXONE 1G [Concomitant]
     Dates: start: 20201006, end: 20201008
  3. AZITHROMYCIN 500MG [Concomitant]
     Active Substance: AZITHROMYCIN
     Dates: start: 20201007, end: 20201011

REACTIONS (1)
  - Liver function test increased [None]

NARRATIVE: CASE EVENT DATE: 20201006
